FAERS Safety Report 8934538 (Version 1)
Quarter: 2012Q4

REPORT INFORMATION
  Report Type: 
  Country: US (occurrence: US)
  Receive Date: 20121129
  Receipt Date: 20121129
  Transmission Date: 20130627
  Serious: No
  Sender: FDA-Public Use
  Company Number: US-GLAXOSMITHKLINE-A0988473A

PATIENT
  Age: 77 Year
  Sex: Female

DRUGS (4)
  1. FLOVENT [Suspect]
     Indication: EMPHYSEMA
     Dosage: 1PUFF Twice per day
     Route: 055
     Dates: start: 201201, end: 20120803
  2. ADVAIR [Suspect]
     Indication: EMPHYSEMA
     Dosage: 1PUFF Twice per day
     Route: 055
     Dates: start: 201105, end: 201105
  3. ATENOLOL [Concomitant]
  4. PANTOPRAZOLE [Concomitant]

REACTIONS (2)
  - Fungal oesophagitis [Not Recovered/Not Resolved]
  - Palpitations [Not Recovered/Not Resolved]
